FAERS Safety Report 7793766-4 (Version None)
Quarter: 2011Q4

REPORT INFORMATION
  Report Type: 
  Country: None (occurrence: None)
  Receive Date: 20111003
  Receipt Date: 20110920
  Transmission Date: 20120403
  Serious: Yes (Hospitalization)
  Sender: FDA-Public Use
  Company Number: JP-MYLANLABS-2011S1020043

PATIENT
  Age: 57 Year
  Sex: Male

DRUGS (1)
  1. PACLITAXEL [Suspect]
     Indication: OESOPHAGEAL ADENOCARCINOMA
     Dosage: WEEKLY INFUSION
     Route: 065

REACTIONS (3)
  - EMPYEMA [None]
  - MEDIASTINAL ABSCESS [None]
  - PLEURAL EFFUSION [None]
